FAERS Safety Report 6468636-4 (Version None)
Quarter: 2009Q4

REPORT INFORMATION
  Report Type: 
  Country: None (occurrence: None)
  Receive Date: 20091119
  Receipt Date: 20090721
  Transmission Date: 20100525
  Serious: No
  Sender: FDA-Public Use
  Company Number: WAES 0907USA04439

PATIENT
  Age: 56 Year
  Sex: Female

DRUGS (2)
  1. JANUVIA [Suspect]
     Indication: DIABETES MELLITUS
     Dosage: 10MG/UNK/PO
     Route: 048
     Dates: start: 20090601
  2. ADDERALL TABLETS [Concomitant]

REACTIONS (1)
  - BLOOD GLUCOSE FLUCTUATION [None]
